FAERS Safety Report 14095622 (Version 5)
Quarter: 2017Q4

REPORT INFORMATION
  Report Type: Report from Study
  Country: US (occurrence: US)
  Receive Date: 20171016
  Receipt Date: 20171227
  Transmission Date: 20180321
  Serious: Yes (Death, Hospitalization)
  Sender: FDA-Public Use
  Company Number: US-ACTELION-A-US2017-155758

PATIENT
  Age: 36 Year
  Sex: Female
  Weight: 86.62 kg

DRUGS (19)
  1. NACL [Concomitant]
     Active Substance: SODIUM CHLORIDE
  2. POTASSIUM [Concomitant]
     Active Substance: POTASSIUM
  3. SPIRONOLACTONE. [Concomitant]
     Active Substance: SPIRONOLACTONE
  4. SMZ-TMP [Concomitant]
     Active Substance: SULFAMETHOXAZOLE\TRIMETHOPRIM
  5. COUMADIN [Concomitant]
     Active Substance: WARFARIN SODIUM
  6. PREDNISONE. [Concomitant]
     Active Substance: PREDNISONE
  7. ENOXAPARIN [Concomitant]
     Active Substance: ENOXAPARIN
  8. CEPHALEXIN. [Concomitant]
     Active Substance: CEPHALEXIN
  9. ONDANSETRON [Concomitant]
     Active Substance: ONDANSETRON
  10. GABAPENTIN. [Concomitant]
     Active Substance: GABAPENTIN
  11. LASIX [Concomitant]
     Active Substance: FUROSEMIDE
  12. MTX [Concomitant]
     Active Substance: METHOTREXATE SODIUM
  13. FA [Concomitant]
  14. BUMETANIDE. [Concomitant]
     Active Substance: BUMETANIDE
  15. OPSUMIT [Suspect]
     Active Substance: MACITENTAN
     Indication: PULMONARY ARTERIAL HYPERTENSION
     Dosage: 10 MG, QD
     Route: 048
     Dates: end: 20171103
  16. LIDOCAINE. [Concomitant]
     Active Substance: LIDOCAINE
  17. ADCIRCA [Concomitant]
     Active Substance: TADALAFIL
     Dosage: 40 MG, QD
  18. VELETRI [Suspect]
     Active Substance: EPOPROSTENOL
     Indication: PULMONARY ARTERIAL HYPERTENSION
     Dosage: 28.6 NG/KG, PER MIN
     Route: 042
  19. METOLAZONE. [Concomitant]
     Active Substance: METOLAZONE

REACTIONS (32)
  - Condition aggravated [Unknown]
  - Intra-abdominal fluid collection [Not Recovered/Not Resolved]
  - Gastrointestinal haemorrhage [Recovered/Resolved]
  - Malnutrition [Unknown]
  - Device leakage [Unknown]
  - Dyspnoea [Unknown]
  - Fluid overload [Unknown]
  - Respiratory failure [Unknown]
  - Acute kidney injury [Recovered/Resolved]
  - Hyperkalaemia [Recovered/Resolved]
  - Mediastinal fibrosis [Unknown]
  - Weight decreased [Unknown]
  - Blood potassium increased [Unknown]
  - Sarcoidosis [Fatal]
  - Pulmonary arterial hypertension [Unknown]
  - Endotracheal intubation [Not Recovered/Not Resolved]
  - Oedema [Recovering/Resolving]
  - Cor pulmonale acute [Unknown]
  - Abdominal cavity drainage [Not Recovered/Not Resolved]
  - Vomiting [Unknown]
  - Cardiogenic shock [Unknown]
  - Respiratory disorder [Unknown]
  - Melaena [Recovered/Resolved]
  - Malabsorption [Unknown]
  - Haemoglobin decreased [Unknown]
  - Acidosis [Unknown]
  - Post procedural complication [Unknown]
  - Ascites [Unknown]
  - Pericardial effusion [Unknown]
  - Iron deficiency anaemia [Unknown]
  - Hyponatraemia [Unknown]
  - Nausea [Unknown]
